FAERS Safety Report 11411577 (Version 1)
Quarter: 2015Q3

REPORT INFORMATION
  Report Type: Spontaneous
  Country: US (occurrence: US)
  Receive Date: 20150821
  Receipt Date: 20150821
  Transmission Date: 20151125
  Serious: No
  Sender: FDA-Public Use
  Company Number: US-ELI_LILLY_AND_COMPANY-US201109003420

PATIENT
  Age: 63 Year
  Sex: Female
  Weight: 126.98 kg

DRUGS (1)
  1. HUMULIN N [Suspect]
     Active Substance: INSULIN HUMAN
     Indication: DIABETES MELLITUS
     Dosage: 40 U, EACH EVENING
     Dates: start: 201107

REACTIONS (3)
  - Drug dose omission [Recovered/Resolved]
  - Nervousness [Unknown]
  - Asthenopia [Unknown]
